FAERS Safety Report 10149925 (Version 1)
Quarter: 2014Q2

REPORT INFORMATION
  Report Type: Spontaneous
  Country: US (occurrence: None)
  Receive Date: 20140501
  Receipt Date: 20140501
  Transmission Date: 20141212
  Serious: No
  Sender: FDA-Public Use
  Company Number: None

PATIENT
  Sex: 0

DRUGS (2)
  1. LISINOPRIL [Suspect]
  2. NORVASC [Suspect]

REACTIONS (6)
  - Epistaxis [None]
  - Migraine [None]
  - Vomiting [None]
  - Malaise [None]
  - Blood pressure decreased [None]
  - Renal failure [None]
